FAERS Safety Report 6210131-1 (Version None)
Quarter: 2009Q2

REPORT INFORMATION
  Report Type: 
  Country: None (occurrence: None)
  Receive Date: 20090601
  Receipt Date: 20090522
  Transmission Date: 20091009
  Serious: No
  Sender: FDA-Public Use
  Company Number: US-BIOGENIDEC-2009BI012778

PATIENT
  Sex: Female
  Weight: 78 kg

DRUGS (1)
  1. AVONEX [Suspect]
     Indication: MULTIPLE SCLEROSIS
     Route: 030
     Dates: start: 20060101

REACTIONS (6)
  - DEPRESSION [None]
  - INSOMNIA [None]
  - MIGRAINE [None]
  - MYODESOPSIA [None]
  - PHOTOPSIA [None]
  - VISUAL IMPAIRMENT [None]
